FAERS Safety Report 16454166 (Version 1)
Quarter: 2019Q2

REPORT INFORMATION
  Report Type: Spontaneous
  Country: US (occurrence: US)
  Receive Date: 20190619
  Receipt Date: 20190619
  Transmission Date: 20190711
  Serious: No
  Sender: FDA-Public Use
  Company Number: US-ROCHE-2196938

PATIENT
  Age: 53 Year
  Sex: Female
  Weight: 81.72 kg

DRUGS (1)
  1. ACTEMRA [Suspect]
     Active Substance: TOCILIZUMAB
     Indication: RHEUMATOID ARTHRITIS
     Dosage: ONGOING: YES
     Route: 058
     Dates: start: 2017

REACTIONS (3)
  - Product dose omission [Unknown]
  - Syringe issue [Unknown]
  - No adverse event [Unknown]

NARRATIVE: CASE EVENT DATE: 20181005
